FAERS Safety Report 6508217-7 (Version None)
Quarter: 2009Q4

REPORT INFORMATION
  Report Type: 
  Country: None (occurrence: None)
  Receive Date: 20091221
  Receipt Date: 20081204
  Transmission Date: 20100525
  Serious: No
  Sender: FDA-Public Use
  Company Number: US-ASTRAZENECA-2008UW27102

PATIENT
  Age: 60 Year
  Sex: Female
  Weight: 117.9 kg

DRUGS (6)
  1. CRESTOR [Suspect]
     Indication: BLOOD CHOLESTEROL
     Route: 048
  2. AMBIEN [Concomitant]
  3. LOTREL [Concomitant]
  4. CELEBREX [Concomitant]
  5. PROTONIX [Concomitant]
  6. NATURAL 303 [Concomitant]

REACTIONS (1)
  - FEELING ABNORMAL [None]
